FAERS Safety Report 5190215-X (Version None)
Quarter: 2006Q4

REPORT INFORMATION
  Report Type: 
  Country: None (occurrence: None)
  Receive Date: 20061222
  Receipt Date: 20061028
  Transmission Date: 20070319
  Serious: No
  Sender: FDA-Public Use
  Company Number: US-AMGEN-KDL198636

PATIENT
  Sex: Male

DRUGS (17)
  1. ARANESP [Suspect]
     Dates: start: 20061027
  2. COUMADIN [Concomitant]
  3. COLACE [Concomitant]
  4. ZOCOR [Concomitant]
  5. LEXAPRO [Concomitant]
  6. PREDNISONE TAB [Concomitant]
  7. ACTONEL [Concomitant]
  8. DIGOXIN [Concomitant]
  9. LASIX [Concomitant]
  10. SYNTHROID [Concomitant]
  11. TIAZAC [Concomitant]
  12. STARLIX [Concomitant]
  13. PROAMATINE [Concomitant]
  14. FORADIL [Concomitant]
  15. PULMICORT [Concomitant]
  16. OMEPRAZOLE [Concomitant]
  17. OXYGEN [Concomitant]

REACTIONS (2)
  - FATIGUE [None]
  - MALAISE [None]
